FAERS Safety Report 5022063-5 (Version None)
Quarter: 2006Q2

REPORT INFORMATION
  Report Type: 
  Country: None (occurrence: None)
  Receive Date: 20060605
  Receipt Date: 20060508
  Transmission Date: 20061013
  Serious: Yes (Death)
  Sender: FDA-Public Use
  Company Number: 224572

PATIENT
  Age: 39 Year
  Sex: Female

DRUGS (5)
  1. RITUXAN [Suspect]
     Indication: SYSTEMIC LUPUS ERYTHEMATOSUS
     Dosage: 1000 MG, Q2W,
     Dates: start: 20060417
  2. CYCLOPHOSPHAMIDE [Concomitant]
  3. MESNA [Concomitant]
  4. SOLU-MEDROL [Concomitant]
  5. BENADRYL [Concomitant]

REACTIONS (6)
  - ACUTE MYOCARDIAL INFARCTION [None]
  - CARDIO-RESPIRATORY ARREST [None]
  - DIZZINESS [None]
  - DRUG INEFFECTIVE [None]
  - FALL [None]
  - NAUSEA [None]
